FAERS Safety Report 7302274-6 (Version None)
Quarter: 2011Q1

REPORT INFORMATION
  Report Type: 
  Country: None (occurrence: None)
  Receive Date: 20110218
  Receipt Date: 20110207
  Transmission Date: 20110831
  Serious: Yes (Other)
  Sender: FDA-Public Use
  Company Number: BR-GENENTECH-306108

PATIENT
  Sex: Female
  Weight: 68 kg

DRUGS (11)
  1. ROQUINOL [Concomitant]
     Indication: PRODUCT USED FOR UNKNOWN INDICATION
     Dosage: 400 MG, UNK
  2. PURAN T4 [Concomitant]
     Indication: PRODUCT USED FOR UNKNOWN INDICATION
     Dosage: 125 A?G, UNK
  3. ARADOIS H [Concomitant]
     Indication: PRODUCT USED FOR UNKNOWN INDICATION
     Dosage: 100 MG, UNK
  4. BROMAZEPAM [Concomitant]
     Indication: PRODUCT USED FOR UNKNOWN INDICATION
     Dosage: 3 MG, UNK
  5. RITUXIMAB [Suspect]
     Indication: RHEUMATOID ARTHRITIS
     Dosage: UNK
     Route: 065
     Dates: start: 20100707, end: 20100729
  6. MELOXICAM [Concomitant]
     Indication: PRODUCT USED FOR UNKNOWN INDICATION
  7. OMEPRAZOLE [Concomitant]
     Indication: PRODUCT USED FOR UNKNOWN INDICATION
     Dosage: 20 MG, UNK
  8. ARAVA [Concomitant]
     Indication: PRODUCT USED FOR UNKNOWN INDICATION
     Dosage: 20 MG, UNK
  9. PREDNISONE [Concomitant]
     Indication: PRODUCT USED FOR UNKNOWN INDICATION
     Dosage: 20 MG, UNK
  10. PREDNISONE [Concomitant]
     Dosage: 10 MG, UNK
  11. CHLOROQUINE [Concomitant]
     Indication: PRODUCT USED FOR UNKNOWN INDICATION

REACTIONS (12)
  - MUSCULOSKELETAL DISORDER [None]
  - GAIT DISTURBANCE [None]
  - ARTHRALGIA [None]
  - COUGH [None]
  - BRONCHITIS [None]
  - BONE PAIN [None]
  - WEIGHT INCREASED [None]
  - HERPES ZOSTER [None]
  - ALLERGIC BRONCHITIS [None]
  - SPINAL DISORDER [None]
  - NERVE COMPRESSION [None]
  - DECREASED IMMUNE RESPONSIVENESS [None]
